FAERS Safety Report 14625538 (Version 1)
Quarter: 2018Q1

REPORT INFORMATION
  Report Type: Not Available
  Country: DE (occurrence: DE)
  Receive Date: 20180312
  Receipt Date: 20180312
  Transmission Date: 20180509
  Serious: Yes (Death)
  Sender: FDA-Public Use
  Company Number: DE-SYNTHON BV-NL01PV18_46766

PATIENT
  Age: 79 Year
  Sex: Male

DRUGS (5)
  1. RAMIPRIL. [Interacting]
     Active Substance: RAMIPRIL
     Dosage: 2.5 MG, DAILY
     Dates: start: 20170207
  2. VENLAFAXIN [Interacting]
     Active Substance: VENLAFAXINE HYDROCHLORIDE
     Dosage: 37.5 MG, DAILY
     Dates: start: 20170207
  3. FINASTERID [Interacting]
     Active Substance: FINASTERIDE
     Dosage: 5 MG, DAILY
     Dates: start: 20170207
  4. MELPERON [Interacting]
     Active Substance: MELPERONE
     Dosage: 15 MG, DAILY
     Dates: start: 20170207
  5. TAMSULOSIN HEXAL RETARD [Suspect]
     Active Substance: TAMSULOSIN HYDROCHLORIDE
     Dosage: 0.4 MG, DAILY
     Dates: start: 20170206, end: 20170207

REACTIONS (2)
  - Drug interaction [Unknown]
  - Death [Fatal]

NARRATIVE: CASE EVENT DATE: 20170208
